FAERS Safety Report 5347796-2 (Version None)
Quarter: 2007Q2

REPORT INFORMATION
  Report Type: 
  Country: None (occurrence: None)
  Receive Date: 20070516
  Receipt Date: 20070312
  Transmission Date: 20071010
  Serious: No
  Sender: FDA-Public Use
  Company Number: SPV1-2007-01228

PATIENT
  Age: 81 Year
  Sex: Male
  Weight: 72.6 kg

DRUGS (3)
  1. FOSRENOL [Suspect]
     Indication: HYPERPHOSPHATAEMIA
     Dosage: 500 MG, 4X/DAY:QID, ORAL
     Route: 048
     Dates: start: 20070307, end: 20070310
  2. PHOSLO [Concomitant]
  3. REMERON [Concomitant]

REACTIONS (4)
  - ABDOMINAL PAIN UPPER [None]
  - DIARRHOEA [None]
  - FALL [None]
  - OEDEMA PERIPHERAL [None]
